FAERS Safety Report 7423968-8 (Version None)
Quarter: 2011Q2

REPORT INFORMATION
  Report Type: 
  Country: None (occurrence: None)
  Receive Date: 20110419
  Receipt Date: 20110412
  Transmission Date: 20111010
  Serious: Yes (Hospitalization)
  Sender: FDA-Public Use
  Company Number: B0710605A

PATIENT
  Age: 56 Year
  Sex: Female

DRUGS (4)
  1. CEFTRIAXON [Concomitant]
     Route: 042
  2. KEFEXIN [Concomitant]
     Indication: INFECTION
     Route: 048
  3. CEPHALEXIN [Concomitant]
     Route: 048
  4. VOTRIENT [Suspect]
     Indication: RENAL CELL CARCINOMA
     Dosage: 400MG PER DAY
     Dates: start: 20110316, end: 20110323

REACTIONS (3)
  - LIVER FUNCTION TEST ABNORMAL [None]
  - DIARRHOEA [None]
  - HYPONATRAEMIA [None]
